FAERS Safety Report 8824042 (Version 2)
Quarter: 2012Q4

REPORT INFORMATION
  Report Type: 
  Country: US (occurrence: US)
  Receive Date: 20121004
  Receipt Date: 20121221
  Transmission Date: 20130627
  Serious: Yes (Other)
  Sender: FDA-Public Use
  Company Number: US-AMGEN-USASP2012062405

PATIENT
  Age: 33 Year
  Sex: Female

DRUGS (3)
  1. ENBREL [Suspect]
     Indication: RHEUMATOID ARTHRITIS
     Dosage: 50 mg, qwk
     Dates: start: 20020101
  2. ENBREL [Suspect]
     Indication: PSORIATIC ARTHROPATHY
  3. REMICADE [Concomitant]
     Dosage: UNK

REACTIONS (5)
  - Abortion spontaneous [Recovered/Resolved]
  - Joint swelling [Recovered/Resolved]
  - Nodule [Recovered/Resolved]
  - Arthralgia [Recovered/Resolved]
  - Skin plaque [Recovered/Resolved]
